FAERS Safety Report 16531890 (Version 2)
Quarter: 2019Q3

REPORT INFORMATION
  Report Type: Report from Study
  Country: DE (occurrence: DE)
  Receive Date: 20190704
  Receipt Date: 20190820
  Transmission Date: 20191004
  Serious: Yes (Death)
  Sender: FDA-Public Use
  Company Number: PHHY2019DE149969

PATIENT
  Age: 85 Year
  Sex: Male
  Weight: 67 kg

DRUGS (9)
  1. ASPARIN [Concomitant]
     Indication: CARDIAC FAILURE
     Dosage: 100, QD
     Route: 065
  2. TAMSULOSIN [Concomitant]
     Active Substance: TAMSULOSIN
     Indication: BENIGN PROSTATIC HYPERPLASIA
     Dosage: 0.4 MG, QD (0-0-0-1)
     Route: 065
  3. INEGY [Concomitant]
     Active Substance: EZETIMIBE\SIMVASTATIN
     Indication: HYPERLIPIDAEMIA
     Dosage: 10/40 MG, QD
     Route: 065
  4. METOHEXAL [Concomitant]
     Active Substance: METOPROLOL
     Indication: CARDIAC FAILURE
     Dosage: 95 OT, BID (1-0-1)
     Route: 065
  5. FINASTERID [Concomitant]
     Active Substance: FINASTERIDE
     Indication: BENIGN PROSTATIC HYPERPLASIA
     Dosage: 5 OT, QD (0-0-1)
     Route: 065
  6. EXJADE [Suspect]
     Active Substance: DEFERASIROX
     Indication: IRON OVERLOAD
     Dosage: 360 MG,  (2 TABLETS A 360 MG) (10.7 MG/KG
     Route: 065
     Dates: start: 20190405
  7. OXYCODONE [Concomitant]
     Active Substance: OXYCODONE
     Indication: POLYMYALGIA RHEUMATICA
     Dosage: 10 MG, QD
     Route: 065
  8. ASPIRIN. [Suspect]
     Active Substance: ASPIRIN
     Indication: PRODUCT USED FOR UNKNOWN INDICATION
     Dosage: 100 OT, QD (1-0-0)
     Route: 065
  9. CORTISONE [Concomitant]
     Active Substance: CORTISONE
     Indication: POLYMYALGIA RHEUMATICA
     Dosage: 10 MG, QD
     Route: 065

REACTIONS (2)
  - Death [Fatal]
  - Haematoma [Unknown]

NARRATIVE: CASE EVENT DATE: 20190426
